FAERS Safety Report 7300241-X (Version None)
Quarter: 2011Q1

REPORT INFORMATION
  Report Type: 
  Country: None (occurrence: None)
  Receive Date: 20110217
  Receipt Date: 20110208
  Transmission Date: 20110831
  Serious: No
  Sender: FDA-Public Use
  Company Number: US-BIOGENIDEC-2011BI004687

PATIENT
  Age: 43 Year
  Sex: Female

DRUGS (1)
  1. TYSABRI [Suspect]
     Indication: MULTIPLE SCLEROSIS
     Route: 042
     Dates: start: 20070522

REACTIONS (10)
  - TEMPERATURE INTOLERANCE [None]
  - EYE DISORDER [None]
  - FLUSHING [None]
  - FEELING HOT [None]
  - HYPERHIDROSIS [None]
  - BLOOD PRESSURE DECREASED [None]
  - INCORRECT DRUG ADMINISTRATION RATE [None]
  - CHILLS [None]
  - DIZZINESS [None]
  - NAUSEA [None]
